FAERS Safety Report 7249875-1 (Version None)
Quarter: 2011Q1

REPORT INFORMATION
  Report Type: 
  Country: None (occurrence: None)
  Receive Date: 20110128
  Receipt Date: 20100712
  Transmission Date: 20110831
  Serious: No
  Sender: FDA-Public Use
  Company Number: A0871523A

PATIENT
  Age: 27 Year
  Sex: Female

DRUGS (2)
  1. WELLBUTRIN [Suspect]
     Indication: ANXIETY
     Route: 048
     Dates: start: 20040501
  2. PAXIL [Suspect]
     Indication: ANXIETY
     Route: 048
     Dates: start: 20090801

REACTIONS (1)
  - DRUG INEFFECTIVE [None]
